FAERS Safety Report 7691224-9 (Version None)
Quarter: 2011Q3

REPORT INFORMATION
  Report Type: 
  Country: None (occurrence: None)
  Receive Date: 20110818
  Receipt Date: 20110816
  Transmission Date: 20111222
  Serious: No
  Sender: FDA-Public Use
  Company Number: US-PFIZER INC-2011189323

PATIENT
  Sex: Male

DRUGS (2)
  1. DILANTIN [Suspect]
     Dosage: UNK
     Dates: start: 20101001
  2. CHANTIX [Suspect]
     Dosage: UNK
     Dates: start: 20101001

REACTIONS (1)
  - CONSTIPATION [None]
